FAERS Safety Report 24404976 (Version 1)
Quarter: 2024Q4

REPORT INFORMATION
  Report Type: Spontaneous
  Country: AU (occurrence: AU)
  Receive Date: 20241007
  Receipt Date: 20241007
  Transmission Date: 20250114
  Serious: No
  Sender: ROCHE
  Company Number: AU-ROCHE-3552227

PATIENT
  Age: 64 Year
  Sex: Male

DRUGS (3)
  1. GAZYVA [Suspect]
     Active Substance: OBINUTUZUMAB
     Indication: B-cell small lymphocytic lymphoma
     Route: 042
     Dates: start: 20240314
  2. HYDROCORTISONE [Concomitant]
     Active Substance: HYDROCORTISONE
     Route: 042
  3. PROMETHAZINE [Concomitant]
     Active Substance: PROMETHAZINE HYDROCHLORIDE
     Route: 042

REACTIONS (3)
  - Back pain [Recovered/Resolved]
  - Chills [Recovered/Resolved]
  - Feeling cold [Recovered/Resolved]

NARRATIVE: CASE EVENT DATE: 20240314
